FAERS Safety Report 15540929 (Version 2)
Quarter: 2019Q3

REPORT INFORMATION
  Report Type: Spontaneous
  Country: AU (occurrence: AU)
  Receive Date: 20181023
  Receipt Date: 20190819
  Transmission Date: 20191004
  Serious: Yes (Hospitalization, Other)
  Sender: FDA-Public Use
  Company Number: AU-009507513-1810AUS007700

PATIENT
  Age: 19899 Day
  Sex: Female

DRUGS (3)
  1. EZETIMIBE. [Suspect]
     Active Substance: EZETIMIBE
     Indication: METABOLIC DISORDER
     Dosage: 10 MG, QD
     Route: 048
     Dates: start: 20050331
  2. FENTANYL. [Suspect]
     Active Substance: FENTANYL
     Indication: PAIN
     Dosage: 600 MICROGRAM, QD
     Route: 058
     Dates: start: 20050711, end: 20050720
  3. PROPOFOL. [Suspect]
     Active Substance: PROPOFOL
     Indication: ANAESTHESIA
     Dosage: UNK
     Dates: start: 20050711

REACTIONS (9)
  - Abdominal pain upper [Recovered/Resolved]
  - Disease progression [Recovered/Resolved]
  - Pancreatitis [Recovered/Resolved]
  - Dehydration [Recovered/Resolved]
  - Vomiting [Recovered/Resolved]
  - Abdominal pain [Recovered/Resolved]
  - Renal impairment [Recovered/Resolved]
  - Lipase increased [Recovered/Resolved]
  - Nausea [Recovered/Resolved]

NARRATIVE: CASE EVENT DATE: 20050714
